FAERS Safety Report 9578057 (Version 1)
Quarter: 2013Q4

REPORT INFORMATION
  Report Type: Spontaneous
  Country: US (occurrence: US)
  Receive Date: 20131001
  Receipt Date: 20131001
  Transmission Date: 20140711
  Serious: No
  Sender: FDA-Public Use
  Company Number: US-AMGEN-USASP2013010879

PATIENT
  Age: 57 Year
  Sex: Female

DRUGS (6)
  1. ENBREL [Suspect]
     Indication: RHEUMATOID ARTHRITIS
     Dosage: 50 MG, QWK
     Route: 058
     Dates: start: 201211
  2. ENALAPRIL [Concomitant]
     Dosage: 10 MG, UNK
  3. BUSPAR [Concomitant]
     Dosage: 10 MG, UNK
  4. PAXIL                              /00500401/ [Concomitant]
     Dosage: 10 MG, UNK
  5. LEVOTHYROXIN [Concomitant]
     Dosage: 100 MUG, UNK
  6. TOPROL [Concomitant]
     Dosage: 25 MG, UNK

REACTIONS (2)
  - Injection site mass [Unknown]
  - Injection site erythema [Unknown]
